FAERS Safety Report 10089796 (Version 2)
Quarter: 2014Q2

REPORT INFORMATION
  Report Type: Spontaneous
  Country: IN (occurrence: IN)
  Receive Date: 20140421
  Receipt Date: 20140421
  Transmission Date: 20141212
  Serious: Yes (Congenital Anomaly)
  Sender: FDA-Public Use
  Company Number: IN-ELI_LILLY_AND_COMPANY-IN200605004761

PATIENT
  Sex: 0
  Weight: 2.2 kg

DRUGS (2)
  1. OLANZAPINE [Suspect]
     Dosage: 15 MG, DAILY (1/D)
     Route: 064
  2. OLANZAPINE [Suspect]
     Dosage: 10 MG, DAILY (1/D)
     Route: 064

REACTIONS (4)
  - Meningocele [Unknown]
  - Congenital eyelid malformation [Unknown]
  - Weight decrease neonatal [Unknown]
  - Foetal exposure during pregnancy [Unknown]
